FAERS Safety Report 9128289 (Version 1)
Quarter: 2013Q1

REPORT INFORMATION
  Report Type: Spontaneous
  Country: US (occurrence: US)
  Receive Date: 20130228
  Receipt Date: 20130228
  Transmission Date: 20140127
  Serious: No
  Sender: FDA-Public Use
  Company Number: US-ABBOTT-13P-163-1038350-00

PATIENT
  Age: 51 Year
  Sex: Male
  Weight: 104.42 kg

DRUGS (6)
  1. ANDROGEL [Suspect]
     Indication: BLOOD TESTOSTERONE DECREASED
     Dosage: 3 PUMPS DAILY
     Route: 061
     Dates: start: 201212
  2. ANDROGEL [Suspect]
     Dosage: 2.5 PUMPS DAILY
     Route: 061
  3. LORATADINE [Concomitant]
     Indication: MECHANICAL URTICARIA
  4. BABY ASPIRIN [Concomitant]
     Indication: SPLENECTOMY
  5. VITAMIN E [Concomitant]
     Indication: VITAMIN SUPPLEMENTATION
  6. OMEPRAZOLE [Concomitant]
     Indication: GASTROOESOPHAGEAL REFLUX DISEASE

REACTIONS (4)
  - Chest discomfort [Recovered/Resolved]
  - Incorrect dose administered [Recovered/Resolved]
  - Aggression [Recovered/Resolved]
  - Anxiety [Recovered/Resolved]
